FAERS Safety Report 8842153 (Version 1)
Quarter: 2012Q4

REPORT INFORMATION
  Report Type: 
  Country: US (occurrence: US)
  Receive Date: 20121016
  Receipt Date: 20121016
  Transmission Date: 20130627
  Serious: Yes (Other)
  Sender: FDA-Public Use
  Company Number: PHEH2012US020141

PATIENT
  Sex: Female

DRUGS (4)
  1. TEGRETOL [Suspect]
     Dosage: UNK UKN, UNK
  2. TRANXENE [Suspect]
     Dosage: UNK UKN, UNK
  3. DEPAKOTE [Suspect]
     Dosage: UNK UKN, UNK
  4. DILANTIN [Concomitant]
     Dosage: UNK UKN, UNK

REACTIONS (1)
  - Convulsion [Recovered/Resolved]
